FAERS Safety Report 12347296 (Version 1)
Quarter: 2016Q2

REPORT INFORMATION
  Report Type: Spontaneous
  Country: CA (occurrence: CA)
  Receive Date: 20160509
  Receipt Date: 20160509
  Transmission Date: 20160815
  Serious: Yes (Hospitalization, Disabling)
  Sender: FDA-Public Use
  Company Number: PHHY2016CA061826

PATIENT
  Age: 61 Year
  Sex: Female
  Weight: 72.6 kg

DRUGS (5)
  1. METFORMIN [Concomitant]
     Active Substance: METFORMIN HYDROCHLORIDE
     Indication: TYPE 2 DIABETES MELLITUS
     Dosage: 850 MG, BID
     Route: 065
  2. ATORVASTATIN SANDOZ [Suspect]
     Active Substance: ATORVASTATIN
     Indication: DYSLIPIDAEMIA
     Dosage: 20 MG, QD
     Route: 065
     Dates: start: 2015
  3. ADVIL [Concomitant]
     Active Substance: IBUPROFEN
     Indication: HEADACHE
     Dosage: 400 MG, PRN
     Route: 065
  4. TOPICORT [Concomitant]
     Active Substance: DESOXIMETASONE
     Indication: ECZEMA
     Dosage: 2 UNK, BID
     Route: 061
  5. MOTRIN [Concomitant]
     Active Substance: IBUPROFEN
     Indication: HEADACHE
     Dosage: 400 MG, PRN
     Route: 065

REACTIONS (9)
  - Respiratory muscle weakness [Unknown]
  - Dysphagia [Unknown]
  - Myoglobinuria [Unknown]
  - Asthenia [Unknown]
  - Immune-mediated necrotising myopathy [Recovering/Resolving]
  - Muscular weakness [Unknown]
  - Decreased appetite [Unknown]
  - Gait disturbance [Unknown]
  - Rash [Unknown]
